FAERS Safety Report 21340527 (Version 1)
Quarter: 2022Q3

REPORT INFORMATION
  Report Type: Other
  Country: GB (occurrence: GB)
  Receive Date: 20220916
  Receipt Date: 20220916
  Transmission Date: 20221027
  Serious: Yes (Hospitalization, Other)
  Sender: FDA-Public Use
  Company Number: GB-CELLTRION INC.-2022GB014706

PATIENT

DRUGS (3)
  1. INFLIXIMAB [Suspect]
     Active Substance: INFLIXIMAB
     Indication: Crohn^s disease
     Dosage: 400 MG AT WEEK 0, 2, AND 6
     Route: 042
     Dates: start: 20220628, end: 20220809
  2. RIGEVIDON (28) [Concomitant]
     Dosage: UNK
     Dates: start: 20200306
  3. SERTRALINE [Concomitant]
     Active Substance: SERTRALINE HYDROCHLORIDE
     Dosage: UNK
     Dates: start: 20171009

REACTIONS (5)
  - Pyrexia [Recovered/Resolved]
  - Tachycardia [Recovered/Resolved]
  - Hypotension [Recovered/Resolved]
  - COVID-19 [Unknown]
  - Underdose [Unknown]

NARRATIVE: CASE EVENT DATE: 20220809
